FAERS Safety Report 21283555 (Version 1)
Quarter: 2022Q3

REPORT INFORMATION
  Report Type: Spontaneous
  Country: US (occurrence: None)
  Receive Date: 20220901
  Receipt Date: 20220901
  Transmission Date: 20221026
  Serious: Yes (Hospitalization)
  Sender: FDA-Public Use
  Company Number: None

PATIENT
  Sex: Male

DRUGS (1)
  1. AUSTEDO [Suspect]
     Active Substance: DEUTETRABENAZINE
     Indication: Schizoaffective disorder
     Dosage: 12MG ONCE DAILY BY MOUTH
     Route: 048
     Dates: start: 20220729

REACTIONS (2)
  - Psychotic disorder [None]
  - Therapy cessation [None]
